FAERS Safety Report 20906486 (Version 3)
Quarter: 2022Q2

REPORT INFORMATION
  Report Type: Spontaneous
  Country: US (occurrence: US)
  Receive Date: 20220602
  Receipt Date: 20220628
  Transmission Date: 20220721
  Serious: No
  Sender: FDA-Public Use
  Company Number: US-PFIZER INC-202200785685

PATIENT
  Age: 77 Year
  Sex: Female

DRUGS (2)
  1. IBRANCE [Suspect]
     Active Substance: PALBOCICLIB
     Dosage: UNK
  2. FULVESTRANT [Concomitant]
     Active Substance: FULVESTRANT
     Dosage: UNK

REACTIONS (9)
  - Muscular weakness [Unknown]
  - Asthenia [Unknown]
  - Decreased appetite [Unknown]
  - Constipation [Recovered/Resolved]
  - Abdominal distension [Unknown]
  - Heart valve replacement [Unknown]
  - Abdominal distension [Unknown]
  - Fluid retention [Unknown]
  - Discomfort [Unknown]
